FAERS Safety Report 6111247-0 (Version None)
Quarter: 2009Q1

REPORT INFORMATION
  Report Type: 
  Country: None (occurrence: None)
  Receive Date: 20090309
  Receipt Date: 20090227
  Transmission Date: 20090719
  Serious: Yes (Hospitalization, Other)
  Sender: FDA-Public Use
  Company Number: 205519

PATIENT
  Age: 47 Year
  Sex: Female

DRUGS (3)
  1. ACYCLOVIR [Suspect]
     Indication: HERPES ZOSTER
     Dosage: 250 MG, THREE TIMES DAILY, INTRAVENOUS
     Route: 042
  2. AZATHIOPRINE [Concomitant]
  3. (PREDNISOLONE) [Concomitant]

REACTIONS (6)
  - BLOOD PRESSURE INCREASED [None]
  - DIALYSIS [None]
  - HAEMOGLOBIN DECREASED [None]
  - HALLUCINATION, VISUAL [None]
  - TOXIC ENCEPHALOPATHY [None]
  - VASCULITIS [None]
